FAERS Safety Report 19493117 (Version 1)
Quarter: 2021Q3

REPORT INFORMATION
  Report Type: Spontaneous
  Country: US (occurrence: US)
  Receive Date: 20210705
  Receipt Date: 20210705
  Transmission Date: 20211014
  Serious: Yes (Other)
  Sender: FDA-Public Use
  Company Number: NVSC2021US141914

PATIENT
  Sex: Male

DRUGS (3)
  1. ZYTIGA [Concomitant]
     Active Substance: ABIRATERONE ACETATE
     Indication: PRODUCT USED FOR UNKNOWN INDICATION
     Dosage: UNK
     Route: 065
     Dates: start: 202103
  2. DOCETAXEL. [Suspect]
     Active Substance: DOCETAXEL
     Indication: PROSTATE CANCER METASTATIC
     Dosage: UNK
     Route: 065
     Dates: start: 20200313
  3. DOCETAXEL. [Suspect]
     Active Substance: DOCETAXEL
     Dosage: 60 MG/M2
     Route: 065
     Dates: start: 20200626, end: 20200918

REACTIONS (4)
  - Neuropathy peripheral [Unknown]
  - Prostate cancer metastatic [Unknown]
  - Fatigue [Unknown]
  - Prostate cancer [Unknown]
